FAERS Safety Report 15541313 (Version 1)
Quarter: 2018Q4

REPORT INFORMATION
  Report Type: Other
  Country: FR (occurrence: FR)
  Receive Date: 20181023
  Receipt Date: 20181023
  Transmission Date: 20190205
  Serious: Yes (Hospitalization)
  Sender: FDA-Public Use
  Company Number: FR-INCYTE CORPORATION-2018IN010711

PATIENT

DRUGS (1)
  1. JAKAVI [Suspect]
     Active Substance: RUXOLITINIB
     Indication: PRIMARY MYELOFIBROSIS
     Dosage: 20 MG, QD
     Route: 048
     Dates: start: 201601, end: 201706

REACTIONS (2)
  - Condition aggravated [Not Recovered/Not Resolved]
  - Kaposi^s sarcoma [Not Recovered/Not Resolved]

NARRATIVE: CASE EVENT DATE: 201702
